FAERS Safety Report 6879825-9 (Version None)
Quarter: 2010Q3

REPORT INFORMATION
  Report Type: 
  Country: None (occurrence: None)
  Receive Date: 20100728
  Receipt Date: 20100721
  Transmission Date: 20110219
  Serious: Yes (Other)
  Sender: FDA-Public Use
  Company Number: JP-ASTRAZENECA-2008AP04377

PATIENT
  Age: 74 Year
  Sex: Female

DRUGS (4)
  1. IRESSA [Suspect]
     Indication: NON-SMALL CELL LUNG CANCER
     Route: 048
     Dates: start: 20071112, end: 20071221
  2. IRESSA [Suspect]
     Route: 048
     Dates: start: 20071222
  3. FUNGIZONE [Concomitant]
     Dosage: 4 ML/DAY
     Route: 048
     Dates: start: 20071109
  4. DECADRON [Concomitant]
     Dosage: 8 DF/DAY
     Route: 048
     Dates: start: 20071116

REACTIONS (1)
  - PURPURA [None]
